FAERS Safety Report 8699595 (Version 2)
Quarter: 2012Q4

REPORT INFORMATION
  Report Type: 
  Country: US (occurrence: US)
  Receive Date: 20120802
  Receipt Date: 20121112
  Transmission Date: 20130627
  Serious: Yes (Hospitalization)
  Sender: FDA-Public Use
  Company Number: US-ASTRAZENECA-2011SE49061

PATIENT
  Age: 58 Year
  Sex: Female

DRUGS (9)
  1. NEXIUM [Suspect]
     Route: 048
  2. CRESTOR [Suspect]
     Route: 048
  3. TRAZODONE [Concomitant]
  4. METOPROLOL [Concomitant]
  5. ISOROBMONO ER [Concomitant]
  6. PREVACID [Concomitant]
  7. HYDROCODONE [Concomitant]
  8. ASA [Concomitant]
  9. EFFIENT [Concomitant]

REACTIONS (4)
  - Vomiting [Unknown]
  - Malaise [Unknown]
  - Drug hypersensitivity [Unknown]
  - Drug dose omission [Unknown]
